FAERS Safety Report 7291548-3 (Version None)
Quarter: 2011Q1

REPORT INFORMATION
  Report Type: 
  Country: None (occurrence: None)
  Receive Date: 20110214
  Receipt Date: 20110202
  Transmission Date: 20110831
  Serious: Yes (Other)
  Sender: FDA-Public Use
  Company Number: PHHY2011JP08768

PATIENT
  Age: 18 Year
  Sex: Female

DRUGS (3)
  1. MYCOPHENOLATE MOFETIL [Concomitant]
     Indication: HEART TRANSPLANT
     Dosage: 500 MG
     Route: 048
  2. CYCLOSPORINE [Suspect]
     Indication: HEART TRANSPLANT
     Dosage: UNK
     Route: 048
  3. PREDNISOLONE [Concomitant]
     Indication: HEART TRANSPLANT
     Dosage: 10 MG
     Route: 048

REACTIONS (1)
  - FOCAL NODULAR HYPERPLASIA [None]
